FAERS Safety Report 7518173-0 (Version None)
Quarter: 2011Q2

REPORT INFORMATION
  Report Type: 
  Country: None (occurrence: None)
  Receive Date: 20110531
  Receipt Date: 20110531
  Transmission Date: 20111010
  Serious: No
  Sender: FDA-Public Use
  Company Number: None

PATIENT
  Sex: Female
  Weight: 61.2356 kg

DRUGS (4)
  1. VENLAFAXINE HCL [Suspect]
     Indication: DEPRESSION
     Dosage: 150MG ONCE DAILY PO 047
     Route: 048
     Dates: start: 20100820, end: 20110108
  2. VENLAFAXINE HCL [Suspect]
     Indication: ANXIETY
     Dosage: 150MG ONCE DAILY PO 047
     Route: 048
     Dates: start: 20100820, end: 20110108
  3. EFFEXOR XR [Suspect]
     Indication: DEPRESSION
     Dosage: 150MG ONCE DAILY PO 047
     Route: 048
     Dates: start: 20100716, end: 20110430
  4. EFFEXOR XR [Suspect]
     Indication: ANXIETY
     Dosage: 150MG ONCE DAILY PO 047
     Route: 048
     Dates: start: 20100716, end: 20110430

REACTIONS (2)
  - PRODUCT SUBSTITUTION ISSUE [None]
  - DRUG INEFFECTIVE [None]
